FAERS Safety Report 11366074 (Version 2)
Quarter: 2015Q3

REPORT INFORMATION
  Report Type: Spontaneous
  Country: US (occurrence: US)
  Receive Date: 20150811
  Receipt Date: 20150820
  Transmission Date: 20151125
  Serious: Yes (Other)
  Sender: FDA-Public Use
  Company Number: US-ELI_LILLY_AND_COMPANY-US201508003130

PATIENT
  Sex: Female

DRUGS (2)
  1. CYMBALTA [Suspect]
     Active Substance: DULOXETINE HYDROCHLORIDE
     Indication: DEPRESSION
     Route: 065
  2. CYMBALTA [Suspect]
     Active Substance: DULOXETINE HYDROCHLORIDE
     Indication: PAIN

REACTIONS (11)
  - Agitation [Unknown]
  - Insomnia [Unknown]
  - Mood swings [Unknown]
  - Nightmare [Unknown]
  - Vertigo [Unknown]
  - Drug withdrawal syndrome [Unknown]
  - Irritability [Unknown]
  - Paraesthesia [Unknown]
  - Sleep disorder [Unknown]
  - Nausea [Unknown]
  - Dizziness [Unknown]
